FAERS Safety Report 24839710 (Version 1)
Quarter: 2025Q1

REPORT INFORMATION
  Report Type: Spontaneous
  Country: US (occurrence: US)
  Receive Date: 20250114
  Receipt Date: 20250114
  Transmission Date: 20250408
  Serious: Yes (Other)
  Sender: GILEAD
  Company Number: US-GILEAD-2025-0699642

PATIENT
  Age: 58 Year
  Sex: Male

DRUGS (5)
  1. TRUVADA [Suspect]
     Active Substance: EMTRICITABINE\TENOFOVIR DISOPROXIL FUMARATE
     Indication: HIV infection
     Route: 065
  2. FOSTEMSAVIR [Concomitant]
     Active Substance: FOSTEMSAVIR
  3. IBALIZUMAB [Concomitant]
     Active Substance: IBALIZUMAB
  4. DARUNAVIR + RITONAVIR [Concomitant]
  5. PEMBROLIZUMAB [Concomitant]
     Active Substance: PEMBROLIZUMAB
     Route: 042

REACTIONS (3)
  - Immune reconstitution inflammatory syndrome [Recovering/Resolving]
  - Kaposi^s sarcoma [Recovering/Resolving]
  - Drug ineffective [Unknown]
